FAERS Safety Report 7404456 (Version 6)
Quarter: 2013Q2

REPORT INFORMATION
  Report Type: Report from Study
  Country: BR (occurrence: BR)
  Receive Date: 20100528
  Receipt Date: 20130515
  Transmission Date: 20140414
  Serious: Yes (Death, Hospitalization, Other)
  Sender: FDA-Public Use
  Company Number: PHHO2010BR06283

PATIENT
  Sex: 0

DRUGS (6)
  1. AEB071 [Suspect]
     Indication: RENAL TRANSPLANT
     Dosage: 600 MG, QD
     Route: 048
     Dates: start: 20100319, end: 20100525
  2. CERTICAN [Suspect]
     Indication: RENAL TRANSPLANT
     Dosage: 3 MG, BID
     Route: 048
     Dates: start: 20100319, end: 20100525
  3. MYFORTIC [Suspect]
     Indication: RENAL TRANSPLANT
     Dosage: 360 MG, BID
     Route: 048
     Dates: start: 20100525, end: 20110307
  4. TACROLIMUS [Suspect]
     Indication: RENAL TRANSPLANT
     Dosage: 5 MG, QD
     Route: 048
     Dates: start: 20100525
  5. MYCOPHENOLATE MOFETIL [Suspect]
     Indication: RENAL TRANSPLANT
     Dosage: 1000 MG, BID
     Route: 048
     Dates: start: 20100525
  6. PREDNISONE [Suspect]
     Indication: RENAL TRANSPLANT
     Dosage: 10 MG, QD
     Route: 048
     Dates: start: 20100322, end: 20110307

REACTIONS (20)
  - Nephrotic syndrome [Not Recovered/Not Resolved]
  - Proteinuria [Not Recovered/Not Resolved]
  - Dyslipidaemia [Not Recovered/Not Resolved]
  - Blood albumin decreased [Not Recovered/Not Resolved]
  - Urinary tract infection pseudomonal [Unknown]
  - Kidney transplant rejection [Recovered/Resolved]
  - Lymphocele [Recovered/Resolved]
  - Oedema peripheral [Recovered/Resolved]
  - Scrotal oedema [Recovered/Resolved]
  - Weight increased [Recovered/Resolved]
  - Pyelonephritis [Recovered/Resolved]
  - Renal impairment [Recovered/Resolved]
  - Bacterial infection [Unknown]
  - Septic shock [Fatal]
  - Sepsis [Fatal]
  - Shock haemorrhagic [Fatal]
  - Gastrointestinal haemorrhage [Fatal]
  - Coagulopathy [Fatal]
  - Urethral stenosis [Recovered/Resolved]
  - Urethral dilatation [Recovered/Resolved with Sequelae]
